FAERS Safety Report 5392777-6 (Version None)
Quarter: 2007Q3

REPORT INFORMATION
  Report Type: 
  Country: None (occurrence: None)
  Receive Date: 20070720
  Receipt Date: 20070709
  Transmission Date: 20080115
  Serious: Yes (Hospitalization, Other)
  Sender: FDA-Public Use
  Company Number: JP-PFIZER INC-2007048385

PATIENT
  Sex: Female

DRUGS (9)
  1. LIPITOR [Suspect]
     Indication: HYPERLIPIDAEMIA
     Dosage: DAILY DOSE:10MG-FREQ:DAILY
     Route: 048
  2. VESICARE [Suspect]
     Indication: HYPERTONIC BLADDER
     Dosage: DAILY DOSE:10MG-FREQ:DAILY
     Route: 048
  3. FAMOTIDINE [Suspect]
     Dosage: DAILY DOSE:20MG-FREQ:DAILY
     Route: 048
  4. HALCION [Concomitant]
     Route: 048
  5. AMLODIPINE [Concomitant]
     Indication: HYPERTENSION
     Dosage: DAILY DOSE:5MG-FREQ:DAILY
     Route: 048
  6. ASPIRIN [Concomitant]
     Indication: CEREBRAL INFARCTION
     Dosage: DAILY DOSE:100MG-FREQ:DAILY
     Route: 048
  7. CANDESARTAN CILEXETIL [Concomitant]
     Indication: HYPERTENSION
     Dosage: DAILY DOSE:8MG-FREQ:DAILY
     Route: 048
  8. LASIX [Concomitant]
     Indication: CEREBRAL INFARCTION
     Dosage: DAILY DOSE:20MG-FREQ:DAILY
     Route: 048
  9. ALFAROL [Concomitant]
     Dosage: DAILY DOSE:1MG-FREQ:DAILY
     Route: 048

REACTIONS (2)
  - PYREXIA [None]
  - URINARY RETENTION [None]
